FAERS Safety Report 15049420 (Version 1)
Quarter: 2018Q2

REPORT INFORMATION
  Report Type: Spontaneous
  Country: MX (occurrence: MX)
  Receive Date: 20180622
  Receipt Date: 20180622
  Transmission Date: 20180711
  Serious: Yes (Death, Hospitalization, Other)
  Sender: FDA-Public Use
  Company Number: MX-ROCHE-2143268

PATIENT
  Age: 64 Year
  Sex: Female

DRUGS (11)
  1. AVASTIN [Suspect]
     Active Substance: BEVACIZUMAB
     Indication: COLON CANCER
     Dosage: 10 CYCLES IN TOTAL. TREATMENT FINISHED
     Route: 065
     Dates: start: 200911
  2. AVASTIN [Suspect]
     Active Substance: BEVACIZUMAB
     Indication: COLON CANCER METASTATIC
     Dosage: TREATMENT FINISHED.
     Route: 065
  3. XELODA [Suspect]
     Active Substance: CAPECITABINE
     Indication: COLON CANCER METASTATIC
     Dosage: 4 CYCLES TOTAL. TREATMENT FINISHED
     Route: 065
     Dates: end: 200811
  4. XELODA [Suspect]
     Active Substance: CAPECITABINE
     Indication: COLON CANCER
     Dosage: 4 CYCLES. TREATMENT FINISHED
     Route: 065
     Dates: start: 200806
  5. AVASTIN [Suspect]
     Active Substance: BEVACIZUMAB
     Dosage: TREATMENT FINISHED
     Route: 065
     Dates: start: 201203
  6. XELODA [Suspect]
     Active Substance: CAPECITABINE
     Dosage: DURING 14 DAYS. TREATMENT FINISHED
     Route: 065
  7. XELODA [Suspect]
     Active Substance: CAPECITABINE
     Dosage: TREATMENT FINISHED
     Route: 065
     Dates: start: 201203
  8. OXALIPLATIN. [Concomitant]
     Active Substance: OXALIPLATIN
     Indication: COLON CANCER
     Dosage: 4 CYCLES. TREATMENT FINISHED
     Route: 065
     Dates: start: 200806
  9. XELODA [Suspect]
     Active Substance: CAPECITABINE
     Dosage: 10 CYCLES IN TOTAL. TREATMENT FINISHED
     Route: 065
     Dates: start: 200911
  10. IRINOTECAN [Concomitant]
     Active Substance: IRINOTECAN
     Indication: COLON CANCER
     Dosage: 10 CYCLES IN TOTAL. TREATMENT FINISHED
     Route: 065
     Dates: start: 200911
  11. OXALIPLATIN. [Concomitant]
     Active Substance: OXALIPLATIN
     Indication: COLON CANCER METASTATIC
     Dosage: 4 CYCLES. TREATMENT SUSPENDED
     Route: 065
     Dates: start: 201203

REACTIONS (7)
  - Death [Fatal]
  - Intestinal obstruction [Recovered/Resolved]
  - Haematotoxicity [Unknown]
  - Carcinoembryonic antigen increased [Unknown]
  - Diarrhoea [Unknown]
  - Metastasis [Unknown]
  - Rectal neoplasm [Unknown]

NARRATIVE: CASE EVENT DATE: 200910
